FAERS Safety Report 10682137 (Version 1)
Quarter: 2014Q4

REPORT INFORMATION
  Report Type: Spontaneous
  Country: US (occurrence: None)
  Receive Date: 20141229
  Receipt Date: 20141229
  Transmission Date: 20150529
  Serious: Yes (Other)
  Sender: FDA-Public Use
  Company Number: None

PATIENT
  Age: 33 Year
  Sex: Female
  Weight: 63.96 kg

DRUGS (1)
  1. TAMIFLU [Suspect]
     Active Substance: OSELTAMIVIR PHOSPHATE
     Indication: INFLUENZA
     Dosage: ONE CAPSULE
     Route: 048
     Dates: start: 20141225, end: 20141226

REACTIONS (9)
  - Insomnia [None]
  - Altered visual depth perception [None]
  - Nervousness [None]
  - Hallucination [None]
  - Vertigo [None]
  - Panic reaction [None]
  - Irritability [None]
  - Palpitations [None]
  - Performance fear [None]

NARRATIVE: CASE EVENT DATE: 20141227
